FAERS Safety Report 25407614 (Version 1)
Quarter: 2025Q2

REPORT INFORMATION
  Report Type: Spontaneous
  Country: US (occurrence: None)
  Receive Date: 20250605
  Receipt Date: 20250605
  Transmission Date: 20250717
  Serious: Yes (Other)
  Sender: FDA-CTU
  Company Number: None

PATIENT
  Age: 56 Year
  Sex: Female
  Weight: 83.9 kg

DRUGS (1)
  1. ALTUVIIIO [Suspect]
     Active Substance: EFANESOCTOCOG ALFA
     Indication: Factor VIII deficiency
     Route: 040
     Dates: start: 20250430

REACTIONS (7)
  - Flushing [None]
  - Chest discomfort [None]
  - Throat tightness [None]
  - Dyspnoea [None]
  - Dizziness [None]
  - Sinus congestion [None]
  - Heart rate decreased [None]

NARRATIVE: CASE EVENT DATE: 20250521
